FAERS Safety Report 4507205-X (Version None)
Quarter: 2004Q4

REPORT INFORMATION
  Report Type: 
  Country: None (occurrence: None)
  Receive Date: 20041025
  Receipt Date: 20040520
  Transmission Date: 20050328
  Serious: Yes (Other)
  Sender: FDA-Public Use
  Company Number: US-JNJFOC-20040505089

PATIENT
  Age: 60 Year
  Sex: Male

DRUGS (9)
  1. INFLIXIMAB (INFLIXIMAB , RECOMBINANT) LYOPHILIZED POWDER [Suspect]
     Indication: RHEUMATOID ARTHRITIS
     Dosage: INTRAVENOUS
     Route: 042
     Dates: start: 20031201, end: 20031201
  2. INFLIXIMAB (INFLIXIMAB , RECOMBINANT) LYOPHILIZED POWDER [Suspect]
     Indication: RHEUMATOID ARTHRITIS
     Dosage: INTRAVENOUS
     Route: 042
     Dates: start: 20001128
  3. ALEGRA (FEXOFENADINE HYDROCHLORIDE) [Concomitant]
  4. METHOTREXATE [Concomitant]
  5. FOLIC ACID [Concomitant]
  6. PREDNISONE [Concomitant]
  7. ARAVA [Concomitant]
  8. OROVAIL (KETOPROFEN) [Concomitant]
  9. ASPIRIN [Concomitant]

REACTIONS (1)
  - INFUSION RELATED REACTION [None]
